FAERS Safety Report 15587985 (Version 1)
Quarter: 2018Q4

REPORT INFORMATION
  Report Type: Spontaneous
  Country: US (occurrence: US)
  Receive Date: 20181105
  Receipt Date: 20181105
  Transmission Date: 20190205
  Serious: Yes (Other)
  Sender: FDA-Public Use
  Company Number: US-GLAXOSMITHKLINE-US2018197793

PATIENT
  Sex: Male

DRUGS (3)
  1. ARNUITY ELLIPTA [Suspect]
     Active Substance: FLUTICASONE FUROATE
     Indication: ASTHMA EXERCISE INDUCED
     Dosage: 1 PUFF(S), 1D
     Dates: start: 201701
  2. HYDROCODEINE [Suspect]
     Active Substance: DIHYDROCODEINE PHOSPHATE
     Indication: PRODUCT USED FOR UNKNOWN INDICATION
     Dosage: UNK
  3. BREO ELLIPTA [Suspect]
     Active Substance: FLUTICASONE FUROATE\VILANTEROL TRIFENATATE
     Indication: ASTHMA EXERCISE INDUCED
     Dosage: 1 PUFF(S), 1D
     Route: 055
     Dates: start: 201610, end: 201701

REACTIONS (10)
  - Angina pectoris [Unknown]
  - Drug ineffective [Unknown]
  - Intentional product misuse [Unknown]
  - Dyspnoea [Unknown]
  - Blood urine present [Unknown]
  - Urinary bladder polyp [Recovered/Resolved]
  - Blood pressure increased [Unknown]
  - Impaired healing [Unknown]
  - Bladder operation [Recovered/Resolved]
  - Palpitations [Unknown]
